FAERS Safety Report 25915346 (Version 1)
Quarter: 2025Q4

REPORT INFORMATION
  Report Type: Spontaneous
  Country: US (occurrence: US)
  Receive Date: 20251013
  Receipt Date: 20251013
  Transmission Date: 20260118
  Serious: No
  Sender: ANI
  Company Number: US-ANIPHARMA-2025-US-032732

PATIENT
  Sex: Male

DRUGS (3)
  1. CORTICOTROPIN [Suspect]
     Active Substance: CORTICOTROPIN
     Indication: Multiple sclerosis
     Dosage: 80 UNITS DAILY
     Route: 058
  2. BACLOFEN [Concomitant]
     Active Substance: BACLOFEN
  3. MEMANTINE HYDROCHLORIDE [Concomitant]
     Active Substance: MEMANTINE HYDROCHLORIDE

REACTIONS (4)
  - Product dose omission issue [Unknown]
  - Injection site pruritus [Unknown]
  - Asthenia [Unknown]
  - Arthralgia [Unknown]
